FAERS Safety Report 16152052 (Version 6)
Quarter: 2019Q4

REPORT INFORMATION
  Report Type: Spontaneous
  Country: US (occurrence: US)
  Receive Date: 20190403
  Receipt Date: 20191002
  Transmission Date: 20200122
  Serious: Yes (Hospitalization, Other)
  Sender: FDA-Public Use
  Company Number: US-PFIZER INC-2019139587

PATIENT
  Age: 69 Year
  Sex: Female
  Weight: 70 kg

DRUGS (1)
  1. CELEBREX [Suspect]
     Active Substance: CELECOXIB
     Indication: ARTHRITIS
     Dosage: 200 MG, 1X/DAY
     Route: 048
     Dates: start: 2004

REACTIONS (8)
  - Impaired driving ability [Unknown]
  - Malaise [Unknown]
  - Gait disturbance [Unknown]
  - Myocardial infarction [Recovered/Resolved]
  - Back pain [Not Recovered/Not Resolved]
  - Pain in extremity [Not Recovered/Not Resolved]
  - Memory impairment [Unknown]
  - Knee deformity [Unknown]

NARRATIVE: CASE EVENT DATE: 201902
